FAERS Safety Report 7136775-0 (Version None)
Quarter: 2010Q4

REPORT INFORMATION
  Report Type: 
  Country: None (occurrence: None)
  Receive Date: 20101119
  Receipt Date: 20101110
  Transmission Date: 20110411
  Serious: Yes (Hospitalization, Other)
  Sender: FDA-Public Use
  Company Number: 021912

PATIENT
  Age: 82 Year
  Sex: Female

DRUGS (6)
  1. NEOTENSIN DIU (NEOTENSIN DIU) [Suspect]
     Indication: HYPERTENSION
     Dosage: (20/12.5 MG ORAL)
     Route: 048
     Dates: start: 19990101, end: 20091029
  2. IBUPROFEN [Suspect]
     Indication: FALL
     Dosage: (ORAL)
     Route: 048
     Dates: start: 20091027, end: 20091028
  3. TENSOPREL /00498401/ (TENSOPREL) [Suspect]
     Indication: HYPERTENSION
     Dosage: (100 MG QD ORAL)
     Route: 048
     Dates: start: 20090701, end: 20091029
  4. ZENAVAN (ZENAVAN) [Suspect]
     Dosage: (TOPICAL)
     Route: 061
     Dates: start: 20091025, end: 20091029
  5. DISGREN /00675901/ [Concomitant]
  6. OPIREN [Concomitant]

REACTIONS (10)
  - ASCITES [None]
  - BLOOD GLUCOSE INCREASED [None]
  - BLOOD SODIUM DECREASED [None]
  - CARDIAC FAILURE [None]
  - CARDIOMEGALY [None]
  - DEHYDRATION [None]
  - HEPATOMEGALY [None]
  - PLEURAL EFFUSION [None]
  - RENAL FAILURE ACUTE [None]
  - VOMITING [None]
